FAERS Safety Report 5679613-5 (Version None)
Quarter: 2008Q1

REPORT INFORMATION
  Report Type: 
  Country: None (occurrence: None)
  Receive Date: 20080325
  Receipt Date: 20080317
  Transmission Date: 20080703
  Serious: Yes (Hospitalization)
  Sender: FDA-Public Use
  Company Number: JP-ALLERGAN-0803315US

PATIENT
  Sex: Female

DRUGS (2)
  1. BOTOX INJECTION 100 [Suspect]
     Indication: TORTICOLLIS
     Dosage: 72 UNITS, SINGLE
     Route: 030
     Dates: start: 20071012, end: 20071012
  2. DANTROLENE SODIUM [Concomitant]

REACTIONS (1)
  - RESPIRATORY FAILURE [None]
